FAERS Safety Report 18288990 (Version 2)
Quarter: 2021Q2

REPORT INFORMATION
  Report Type: Spontaneous
  Country: US (occurrence: US)
  Receive Date: 20200921
  Receipt Date: 20210609
  Transmission Date: 20210717
  Serious: No
  Sender: FDA-Public Use
  Company Number: US-PFIZER INC-2020361457

PATIENT
  Age: 61 Year

DRUGS (1)
  1. PRISTIQ EXTENDED?RELEASE [Suspect]
     Active Substance: DESVENLAFAXINE SUCCINATE
     Dosage: UNK (THEY^RE ON PRISTIQ 50 AND 100 FOR TOTAL OF 150)

REACTIONS (2)
  - Drug ineffective [Unknown]
  - Product dispensing error [Unknown]
